FAERS Safety Report 5870648-6 (Version None)
Quarter: 2008Q3

REPORT INFORMATION
  Report Type: 
  Country: None (occurrence: None)
  Receive Date: 20080904
  Receipt Date: 20080827
  Transmission Date: 20090109
  Serious: Yes (Other)
  Sender: FDA-Public Use
  Company Number: PHHY2008BR19533

PATIENT
  Sex: Male

DRUGS (2)
  1. EXFORGE [Suspect]
     Dosage: 160/510MG
  2. EXFORGE [Suspect]
     Dosage: 80/5 MG

REACTIONS (2)
  - HYPERTENSION [None]
  - OEDEMA PERIPHERAL [None]
